APPROVED DRUG PRODUCT: CICLOPIROX
Active Ingredient: CICLOPIROX
Strength: 1%
Dosage Form/Route: SHAMPOO;TOPICAL
Application: A090490 | Product #001 | TE Code: AT
Applicant: ACTAVIS MID ATLANTIC LLC
Approved: Nov 24, 2009 | RLD: No | RS: No | Type: RX